FAERS Safety Report 11872514 (Version 1)
Quarter: 2015Q4

REPORT INFORMATION
  Report Type: Spontaneous
  Country: US (occurrence: None)
  Receive Date: 20151224
  Receipt Date: 20151224
  Transmission Date: 20160305
  Serious: Yes (Life-Threatening, Disabling, Other)
  Sender: FDA-Public Use
  Company Number: None

PATIENT
  Age: 83 Year
  Sex: Male
  Weight: 88.45 kg

DRUGS (5)
  1. MULTI VITAMIN [Suspect]
     Active Substance: VITAMINS
  2. OPTIVIT [Concomitant]
     Active Substance: MINERALS\VITAMINS
  3. OPDIVO [Concomitant]
     Active Substance: NIVOLUMAB
  4. FINASTERIDE. [Suspect]
     Active Substance: FINASTERIDE
     Indication: BENIGN PROSTATIC HYPERPLASIA
     Route: 048
     Dates: start: 20140803, end: 20141104
  5. TAMSULOSIN [Concomitant]
     Active Substance: TAMSULOSIN

REACTIONS (3)
  - Prostatic specific antigen increased [None]
  - Metastases to lung [None]
  - Renal cell carcinoma stage IV [None]

NARRATIVE: CASE EVENT DATE: 20140803
